FAERS Safety Report 8219336-1 (Version None)
Quarter: 2012Q1

REPORT INFORMATION
  Report Type: 
  Country: None (occurrence: None)
  Receive Date: 20120319
  Receipt Date: 20120306
  Transmission Date: 20120608
  Serious: Yes (Life-Threatening, Hospitalization, Other)
  Sender: FDA-Public Use
  Company Number: DE-TEVA-326347GER

PATIENT
  Age: 74 Year
  Sex: Male
  Weight: 90 kg

DRUGS (5)
  1. NOVALGIN, 1000 MG, AMP, SANOFI-AVENTIS [Suspect]
     Dosage: 2
     Route: 042
     Dates: start: 20110922, end: 20110923
  2. LOSARTAN POTASSIUM [Suspect]
     Dosage: LORSARTAN 50 MG + 12.5 MG HYDROCHLORIDE
     Route: 048
     Dates: start: 19930101, end: 20111005
  3. NALOXONE [Suspect]
     Dosage: NALOXON 5 MG + OXYCODONHYDROCHLORIDE 10 MG
     Route: 048
     Dates: start: 20110922, end: 20111030
  4. AMOXICILLIN [Suspect]
     Dosage: 3000 MILLIGRAM;
     Route: 048
     Dates: start: 20111005, end: 20111011
  5. NOVALGIN, TRPF, SANOFI-AVENTIS [Suspect]
     Route: 048
     Dates: start: 20110922, end: 20111002

REACTIONS (1)
  - RENAL FAILURE ACUTE [None]
